FAERS Safety Report 21039273 (Version 3)
Quarter: 2023Q1

REPORT INFORMATION
  Report Type: Spontaneous
  Country: GB (occurrence: GB)
  Receive Date: 20220704
  Receipt Date: 20230123
  Transmission Date: 20230418
  Serious: Yes (Hospitalization)
  Sender: FDA-Public Use
  Company Number: GB-NOVOPROD-933276

PATIENT
  Age: 69 Year
  Sex: Male

DRUGS (2)
  1. NOVORAPID [Suspect]
     Active Substance: INSULIN ASPART
     Indication: Diabetes mellitus
     Dosage: UNK
     Route: 058
  2. NOVORAPID [Suspect]
     Active Substance: INSULIN ASPART
     Dosage: UNK, CARTRIDGE WAS CHANGED
     Route: 058

REACTIONS (4)
  - Diabetic ketoacidosis [Recovered/Resolved]
  - Product physical issue [Unknown]
  - Product leakage [Unknown]
  - Product leakage [Unknown]

NARRATIVE: CASE EVENT DATE: 20220601
